FAERS Safety Report 16330337 (Version 1)
Quarter: 2019Q2

REPORT INFORMATION
  Report Type: Spontaneous
  Country: GB (occurrence: GB)
  Receive Date: 20190520
  Receipt Date: 20190520
  Transmission Date: 20190711
  Serious: Yes (Hospitalization)
  Sender: FDA-Public Use
  Company Number: GB-ACCORD-127968

PATIENT
  Age: 89 Year
  Sex: Female
  Weight: 50.8 kg

DRUGS (9)
  1. OMEPRAZOLE. [Concomitant]
     Active Substance: OMEPRAZOLE
  2. BENDROFLUMETHIAZIDE [Concomitant]
     Active Substance: BENDROFLUMETHIAZIDE
     Dosage: STOPPED
  3. FUROSEMIDE. [Suspect]
     Active Substance: FUROSEMIDE
     Indication: CARDIAC FAILURE CONGESTIVE
     Dosage: (MORNING AND LUNCHTIME)
     Route: 048
     Dates: start: 20190226, end: 20190317
  4. RIVAROXABAN [Concomitant]
     Active Substance: RIVAROXABAN
  5. SIMVASTATIN. [Concomitant]
     Active Substance: SIMVASTATIN
  6. BISOPROLOL [Concomitant]
     Active Substance: BISOPROLOL
  7. DOXAZOSIN [Concomitant]
     Active Substance: DOXAZOSIN\DOXAZOSIN MESYLATE
     Dosage: STOPPED
  8. SPIRONOLACTONE. [Suspect]
     Active Substance: SPIRONOLACTONE
     Indication: CARDIAC FAILURE CONGESTIVE
     Dosage: MORNING
     Route: 048
     Dates: start: 20190226, end: 20190317
  9. LISINOPRIL. [Concomitant]
     Active Substance: LISINOPRIL
     Dosage: STOPPED

REACTIONS (11)
  - Abdominal distension [Unknown]
  - Vomiting [Unknown]
  - Dizziness postural [Unknown]
  - Dizziness [Unknown]
  - Orthostatic hypotension [Not Recovered/Not Resolved]
  - Cardiac murmur [Unknown]
  - Confusional state [Unknown]
  - Abdominal pain upper [Unknown]
  - Acute kidney injury [Unknown]
  - Headache [Unknown]
  - Gait disturbance [Unknown]

NARRATIVE: CASE EVENT DATE: 20190310
